FAERS Safety Report 14844193 (Version 2)
Quarter: 2018Q2

REPORT INFORMATION
  Report Type: Report from Study
  Country: US (occurrence: US)
  Receive Date: 20180503
  Receipt Date: 20180604
  Transmission Date: 20180711
  Serious: Yes (Other)
  Sender: FDA-Public Use
  Company Number: US-GILEAD-2018-0336407

PATIENT
  Age: 21 Year
  Sex: Female
  Weight: 62.13 kg

DRUGS (7)
  1. ZITHROMAX [Concomitant]
     Active Substance: AZITHROMYCIN DIHYDRATE
  2. BETADINE [Concomitant]
     Active Substance: POVIDONE-IODINE
  3. BUPIVICAINE [Concomitant]
     Active Substance: BUPIVACAINE
  4. VYVANSE [Concomitant]
     Active Substance: LISDEXAMFETAMINE DIMESYLATE
     Indication: ATTENTION DEFICIT/HYPERACTIVITY DISORDER
  5. SOFOSBUVIR W/VELPATASVIR [Suspect]
     Active Substance: SOFOSBUVIR\VELPATASVIR
     Indication: HEPATITIS C
     Dosage: 400 MG, QD
     Route: 048
     Dates: start: 20170919, end: 20171212
  6. TYLENOL [Concomitant]
     Active Substance: ACETAMINOPHEN
  7. VASOPRESSIN. [Concomitant]
     Active Substance: VASOPRESSIN

REACTIONS (2)
  - Abortion induced [Recovered/Resolved]
  - Maternal exposure during pregnancy [Recovered/Resolved]

NARRATIVE: CASE EVENT DATE: 20171027
